FAERS Safety Report 17216691 (Version 2)
Quarter: 2020Q1

REPORT INFORMATION
  Report Type: Spontaneous
  Country: DE (occurrence: DE)
  Receive Date: 20191230
  Receipt Date: 20200101
  Transmission Date: 20200409
  Serious: Yes (Other)
  Sender: FDA-Public Use
  Company Number: DE-BAXTER-2019BAX022976

PATIENT
  Sex: Female

DRUGS (16)
  1. CICLOSPORIN [Suspect]
     Active Substance: CYCLOSPORINE
     Indication: RENAL TRANSPLANT
     Route: 065
     Dates: start: 1994
  2. HYALURONIDASE, HUMAN RECOMBINANT [Suspect]
     Active Substance: HYALURONIDASE (HUMAN RECOMBINANT)
     Dosage: 7 X 1400 MG, 1ST LINE 8 CYCLES, RITUXIMAB, HYALURONIDASE (HUMAN RECOMBINANT)
     Route: 058
     Dates: start: 201708, end: 201711
  3. ENDOXAN 1G [Suspect]
     Active Substance: CYCLOPHOSPHAMIDE
     Indication: DIFFUSE LARGE B-CELL LYMPHOMA
     Dosage: 4 CYCLES.
     Route: 065
     Dates: start: 201708, end: 201711
  4. VELCADE [Suspect]
     Active Substance: BORTEZOMIB
     Indication: DIFFUSE LARGE B-CELL LYMPHOMA
     Dosage: 7 X 1400 MG, 1ST LINE 8 CYCLES.
     Route: 065
     Dates: start: 201603, end: 201607
  5. VINCRISTINE [Suspect]
     Active Substance: VINCRISTINE
     Indication: DIFFUSE LARGE B-CELL LYMPHOMA
     Route: 065
     Dates: start: 201708, end: 201711
  6. DOXIL [Suspect]
     Active Substance: DOXORUBICIN HYDROCHLORIDE
     Indication: DIFFUSE LARGE B-CELL LYMPHOMA
     Dosage: 4 CYCLES
     Route: 065
     Dates: start: 201708, end: 201711
  7. VELCADE [Suspect]
     Active Substance: BORTEZOMIB
     Route: 065
     Dates: start: 201705, end: 201707
  8. RITUXIMAB. [Suspect]
     Active Substance: RITUXIMAB
     Indication: DIFFUSE LARGE B-CELL LYMPHOMA
     Dosage: 7 X 1400 MG, 1ST LINE 8 CYCLES, RITUXIMAB, HYALURONIDASE (HUMAN RECOMBINANT)
     Route: 058
     Dates: start: 201603, end: 201607
  9. RITUXIMAB. [Suspect]
     Active Substance: RITUXIMAB
     Route: 041
     Dates: start: 201705, end: 201707
  10. HYALURONIDASE, HUMAN RECOMBINANT [Suspect]
     Active Substance: HYALURONIDASE (HUMAN RECOMBINANT)
     Indication: DIFFUSE LARGE B-CELL LYMPHOMA
     Dosage: 7 X 1400 MG, 1ST LINE 8 CYCLES, RITUXIMAB, HYALURONIDASE (HUMAN RECOMBINANT)
     Route: 058
     Dates: start: 201603, end: 201607
  11. METHYLPREDNISOLONE. [Suspect]
     Active Substance: METHYLPREDNISOLONE
     Indication: RENAL TRANSPLANT
     Route: 065
     Dates: start: 1994
  12. RITUXIMAB. [Suspect]
     Active Substance: RITUXIMAB
     Route: 041
     Dates: start: 201603, end: 201711
  13. RITUXIMAB. [Suspect]
     Active Substance: RITUXIMAB
     Dosage: 7 X 1400 MG, 1ST LINE 8 CYCLES, RITUXIMAB, HYALURONIDASE (HUMAN RECOMBINANT)
     Route: 058
     Dates: start: 201708, end: 201711
  14. PREDNISONE. [Suspect]
     Active Substance: PREDNISONE
     Indication: DIFFUSE LARGE B-CELL LYMPHOMA
     Route: 065
     Dates: start: 201708, end: 201711
  15. RITUXIMAB. [Suspect]
     Active Substance: RITUXIMAB
     Route: 041
     Dates: start: 201708, end: 201711
  16. RITUXIMAB. [Suspect]
     Active Substance: RITUXIMAB
     Route: 041
     Dates: start: 201808, end: 201811

REACTIONS (3)
  - Epstein-Barr virus infection [Unknown]
  - Hepatitis [Unknown]
  - Aspartate aminotransferase increased [Unknown]
